FAERS Safety Report 21905208 (Version 1)
Quarter: 2023Q1

REPORT INFORMATION
  Report Type: Spontaneous
  Country: US (occurrence: None)
  Receive Date: 20230123
  Receipt Date: 20230123
  Transmission Date: 20230418
  Serious: Yes (Other)
  Sender: FDA-Public Use
  Company Number: None

PATIENT
  Age: 23 Year
  Sex: Female
  Weight: 51.75 kg

DRUGS (1)
  1. VENOFER [Suspect]
     Active Substance: IRON SUCROSE
     Dosage: FREQUENCY : ONCE;?
     Route: 041

REACTIONS (2)
  - Skin discolouration [None]
  - Chromaturia [None]

NARRATIVE: CASE EVENT DATE: 20230123
